FAERS Safety Report 9688082 (Version 1)
Quarter: 2013Q4

REPORT INFORMATION
  Report Type: Spontaneous
  Country: BR (occurrence: BR)
  Receive Date: 20131114
  Receipt Date: 20131114
  Transmission Date: 20140711
  Serious: Yes (Hospitalization, Other)
  Sender: FDA-Public Use
  Company Number: BR-SA-2013SA114206

PATIENT
  Sex: Female
  Weight: 83 kg

DRUGS (5)
  1. LANTUS [Suspect]
     Indication: TYPE 2 DIABETES MELLITUS
     Route: 058
     Dates: start: 2010
  2. CLIKSTAR [Concomitant]
     Indication: DEVICE THERAPY
  3. LIPITOR [Concomitant]
     Indication: BLOOD CHOLESTEROL
     Dosage: STRENGTH: 20 MG
     Route: 048
  4. CLOPIDOGREL BISULFATE [Concomitant]
     Indication: ANTICOAGULANT THERAPY
     Route: 048
  5. ATENOLOL [Concomitant]
     Indication: BLOOD PRESSURE
     Route: 048
     Dates: start: 2000

REACTIONS (12)
  - Carotid artery stenosis [Recovered/Resolved]
  - Feeling abnormal [Unknown]
  - Haemorrhage [Unknown]
  - Asthenia [Unknown]
  - Emotional distress [Unknown]
  - Affective disorder [Recovered/Resolved]
  - Tremor [Recovered/Resolved]
  - Crying [Recovered/Resolved]
  - Malaise [Recovered/Resolved]
  - Weight decreased [Recovered/Resolved]
  - Diabetes mellitus inadequate control [Unknown]
  - Vision blurred [Not Recovered/Not Resolved]
